FAERS Safety Report 22668290 (Version 5)
Quarter: 2023Q4

REPORT INFORMATION
  Report Type: Report from Study
  Country: US (occurrence: US)
  Receive Date: 20230704
  Receipt Date: 20231212
  Transmission Date: 20240109
  Serious: No
  Sender: FDA-Public Use
  Company Number: US-002147023-NVSC2023US149373

PATIENT
  Sex: Male

DRUGS (2)
  1. ENTRESTO [Suspect]
     Active Substance: SACUBITRIL\VALSARTAN
     Indication: Product used for unknown indication
     Dosage: 1 DOSAGE FORM, BID
     Route: 048
     Dates: start: 20230617
  2. ENTRESTO [Suspect]
     Active Substance: SACUBITRIL\VALSARTAN
     Dosage: UNK, BID (24 IN THE MORNING AND THE 49 DOSE IN THE EVENING)
     Route: 065

REACTIONS (5)
  - Visual impairment [Unknown]
  - Photophobia [Unknown]
  - Throat clearing [Unknown]
  - Dizziness [Unknown]
  - Incorrect dose administered [Unknown]
